FAERS Safety Report 8898954 (Version 1)
Quarter: 2012Q4

REPORT INFORMATION
  Report Type: 
  Country: US (occurrence: US)
  Receive Date: 20121109
  Receipt Date: 20121109
  Transmission Date: 20130627
  Serious: Yes (Hospitalization)
  Sender: FDA-Public Use
  Company Number: US-BAYER-2012-115948

PATIENT
  Age: 31 Year
  Sex: Female

DRUGS (4)
  1. YASMIN [Suspect]
  2. OCELLA [Suspect]
  3. EXCEDRIN MIGRAINE HEADACHE [Concomitant]
     Dosage: UNK
     Dates: start: 20111010
  4. ASPIRIN [Concomitant]
     Dosage: UNK
     Dates: start: 20111010

REACTIONS (2)
  - Pulmonary embolism [None]
  - Deep vein thrombosis [Recovered/Resolved]
